FAERS Safety Report 5087560-5 (Version None)
Quarter: 2006Q3

REPORT INFORMATION
  Report Type: 
  Country: None (occurrence: None)
  Receive Date: 20060821
  Receipt Date: 20060808
  Transmission Date: 20061208
  Serious: Yes (Other)
  Sender: FDA-Public Use
  Company Number: 2006097464

PATIENT
  Age: 30 Year
  Sex: Female

DRUGS (6)
  1. SERTRALINE [Suspect]
     Indication: DRUG USE FOR UNKNOWN INDICATION
  2. LINEZOLID [Suspect]
     Indication: ENTEROCOCCAL INFECTION
  3. LINEZOLID [Suspect]
     Indication: PANCREATIC PSEUDOCYST
  4. TRAZODONE HYDROCHLORIDE [Suspect]
     Indication: DRUG USE FOR UNKNOWN INDICATION
  5. FENTANYL [Suspect]
     Indication: DRUG USE FOR UNKNOWN INDICATION
  6. BETA BLOCKING AGENTS (BETA BLOCKING AGENTS) [Suspect]
     Indication: DRUG USE FOR UNKNOWN INDICATION

REACTIONS (11)
  - AGITATION [None]
  - ANXIETY [None]
  - BLOOD PRESSURE INCREASED [None]
  - BODY TEMPERATURE DECREASED [None]
  - CHILLS [None]
  - CLONUS [None]
  - COLD SWEAT [None]
  - DRUG WITHDRAWAL SYNDROME [None]
  - HYPERHIDROSIS [None]
  - MYOCLONUS [None]
  - SEROTONIN SYNDROME [None]
